FAERS Safety Report 5348775-1 (Version None)
Quarter: 2007Q2

REPORT INFORMATION
  Report Type: 
  Country: None (occurrence: None)
  Receive Date: 20070606
  Receipt Date: 20070525
  Transmission Date: 20071010
  Serious: Yes (Disabling)
  Sender: FDA-Public Use
  Company Number: US-PFIZER INC-2007045478

PATIENT

DRUGS (1)
  1. LIPITOR [Suspect]

REACTIONS (1)
  - LIMB DISCOMFORT [None]
